FAERS Safety Report 8255924-4 (Version None)
Quarter: 2012Q2

REPORT INFORMATION
  Report Type: 
  Country: None (occurrence: None)
  Receive Date: 20120403
  Receipt Date: 20120326
  Transmission Date: 20120825
  Serious: Yes (Other)
  Sender: FDA-Public Use
  Company Number: DE-ASTRAZENECA-2012SE14797

PATIENT
  Age: 10665 Day
  Sex: Female
  Weight: 85 kg

DRUGS (3)
  1. PIPAMPERON [Concomitant]
     Route: 048
     Dates: start: 20110401
  2. MIRTAZAPINE [Concomitant]
     Route: 048
     Dates: start: 20110401
  3. SEROQUEL XR [Suspect]
     Indication: SCHIZOAFFECTIVE DISORDER
     Dosage: 400-800 MG DAILY
     Route: 048
     Dates: start: 20110401

REACTIONS (1)
  - PERICARDIAL EFFUSION [None]
